FAERS Safety Report 11298031 (Version 1)
Quarter: 2015Q3

REPORT INFORMATION
  Report Type: Spontaneous
  Country: US (occurrence: US)
  Receive Date: 20150722
  Receipt Date: 20150722
  Transmission Date: 20151125
  Serious: No
  Sender: FDA-Public Use
  Company Number: US-ELI_LILLY_AND_COMPANY-US201104003829

PATIENT
  Sex: Female

DRUGS (1)
  1. HUMATROPE [Suspect]
     Active Substance: SOMATROPIN
     Indication: METABOLIC DISORDER
     Dosage: 0.35 MG, QD

REACTIONS (3)
  - Arthritis [Unknown]
  - Drug dose omission [Unknown]
  - Dry eye [Unknown]
